FAERS Safety Report 21710983 (Version 7)
Quarter: 2023Q2

REPORT INFORMATION
  Report Type: Report from Study
  Country: BR (occurrence: BR)
  Receive Date: 20221212
  Receipt Date: 20230428
  Transmission Date: 20230722
  Serious: Yes (Hospitalization)
  Sender: FDA-Public Use
  Company Number: BR-JNJFOC-20221212363

PATIENT
  Age: 16 Year
  Sex: Male
  Weight: 62 kg

DRUGS (15)
  1. INFLIXIMAB [Suspect]
     Active Substance: INFLIXIMAB
     Indication: Crohn^s disease
     Route: 041
     Dates: start: 20221028
  2. REMICADE [Suspect]
     Active Substance: INFLIXIMAB
     Indication: Crohn^s disease
     Dosage: USED ONLY ONE VIAL IN THE FIRST ATTACK DOSE AND WAS USING THREE VIALS IN THE TWO OTHER ATTACK DOSES
     Route: 041
     Dates: start: 20221028
  3. REMICADE [Suspect]
     Active Substance: INFLIXIMAB
     Route: 041
     Dates: start: 20221028
  4. MESALAMINE [Concomitant]
     Active Substance: MESALAMINE
  5. MESALAMINE [Concomitant]
     Active Substance: MESALAMINE
  6. AZATHIOPRINE [Concomitant]
     Active Substance: AZATHIOPRINE
  7. SUCRALFATE [Concomitant]
     Active Substance: SUCRALFATE
  8. PROBIATOP [Concomitant]
  9. CARBOHYDRATES\FATTY ACIDS\MINERALS\PROTEIN\VITAMINS [Concomitant]
     Active Substance: CARBOHYDRATES\FATTY ACIDS\MINERALS\PROTEIN\VITAMINS
  10. VONAL [Concomitant]
  11. DIMETHICONE [Concomitant]
     Active Substance: DIMETHICONE
  12. SUCRALFATE [Concomitant]
     Active Substance: SUCRALFATE
  13. DIGEPLUS [CELLULASE;DEHYDROCHOLIC ACID;DIMETICONE;METOCLOPRAMIDE HYDRO [Concomitant]
  14. ACETAMINOPHEN\CODEINE PHOSPHATE [Concomitant]
     Active Substance: ACETAMINOPHEN\CODEINE PHOSPHATE
  15. PREDNISOLONE [Concomitant]
     Active Substance: PREDNISOLONE

REACTIONS (6)
  - Crohn^s disease [Unknown]
  - Drug resistance [Unknown]
  - Vision blurred [Unknown]
  - Skin reaction [Unknown]
  - Drug ineffective [Unknown]
  - Off label use [Unknown]
